FAERS Safety Report 8579475-2 (Version None)
Quarter: 2012Q3

REPORT INFORMATION
  Report Type: 
  Country: None (occurrence: None)
  Receive Date: 20120808
  Receipt Date: 20120430
  Transmission Date: 20120928
  Serious: Yes (Other)
  Sender: FDA-Public Use
  Company Number: US-GLAXOSMITHKLINE-A0975733A

PATIENT
  Age: 62 Year
  Sex: Male

DRUGS (5)
  1. CLONAZEPAM [Concomitant]
  2. NITROFURANTOIN [Concomitant]
  3. CEPHALEXIN [Suspect]
     Route: 065
  4. JALYN [Suspect]
     Indication: BENIGN PROSTATIC HYPERPLASIA
     Dosage: .5MG PER DAY
     Route: 048
     Dates: start: 20120419
  5. HYDROCODONE BITARTRATE [Concomitant]

REACTIONS (12)
  - PYREXIA [None]
  - INSOMNIA [None]
  - INFLUENZA LIKE ILLNESS [None]
  - FATIGUE [None]
  - BLISTER [None]
  - WEIGHT DECREASED [None]
  - DIARRHOEA [None]
  - RASH [None]
  - PSORIASIS [None]
  - NIGHT SWEATS [None]
  - HYPERHIDROSIS [None]
  - URTICARIA [None]
